FAERS Safety Report 4816678-4 (Version None)
Quarter: 2005Q4

REPORT INFORMATION
  Report Type: 
  Country: None (occurrence: None)
  Receive Date: 20051031
  Receipt Date: 20051031
  Transmission Date: 20060501
  Serious: Yes (Life-Threatening, Disabling)
  Sender: FDA-Public Use
  Company Number: None

PATIENT
  Sex: Female
  Weight: 70.3075 kg

DRUGS (6)
  1. STRATTERA [Suspect]
     Indication: ATTENTION DEFICIT/HYPERACTIVITY DISORDER
     Dosage: VARIOUS   1 OR 2/DAY PO
     Route: 048
     Dates: start: 20050328, end: 20050807
  2. EFFEXOR XR [Concomitant]
  3. HYDROCHLOROTHIAZIDE [Concomitant]
  4. OTC-HERBAL BLACK COHOSH [Concomitant]
  5. ESTROVEN [Concomitant]
  6. LISINOPRIL [Concomitant]

REACTIONS (9)
  - AGGRESSION [None]
  - ANGER [None]
  - ANXIETY [None]
  - BLOOD PRESSURE INCREASED [None]
  - DEPRESSION [None]
  - DRUG INEFFECTIVE [None]
  - SUICIDAL IDEATION [None]
  - TINNITUS [None]
  - VISUAL DISTURBANCE [None]
